FAERS Safety Report 8159220-5 (Version None)
Quarter: 2012Q1

REPORT INFORMATION
  Report Type: 
  Country: None (occurrence: None)
  Receive Date: 20120217
  Receipt Date: 20120208
  Transmission Date: 20120608
  Serious: Yes (Death, Hospitalization, Other)
  Sender: FDA-Public Use
  Company Number: AUR-APL-2011-04208

PATIENT
  Age: 58 Year
  Sex: Female

DRUGS (7)
  1. ASPIRIN [Concomitant]
  2. SIMVASTATIN [Suspect]
     Indication: PRODUCT USED FOR UNKNOWN INDICATION
     Dosage: 20 MG (20 MG, 1 IN 1 D)
  3. INSULIN [Concomitant]
  4. BENDROFLUMETHIAZIDE (BENDROFLUMETHIAZIDE) [Concomitant]
  5. AMITRIPTYLINE HCL [Concomitant]
     Indication: PRODUCT USED FOR UNKNOWN INDICATION
     Dosage: 50 MG (25 MG, 2 IN 1 D)
  6. METFORMIN HCL [Suspect]
     Indication: PRODUCT USED FOR UNKNOWN INDICATION
     Dosage: 20 MG (20 MG, 1 IN 1 D)
  7. CITALOPRAM HYDROBROMIDE [Suspect]
     Indication: PRODUCT USED FOR UNKNOWN INDICATION
     Dosage: 20 MG (20 MG, 1 IN 1 D)

REACTIONS (17)
  - DIZZINESS [None]
  - ATAXIA [None]
  - DISSEMINATED INTRAVASCULAR COAGULATION [None]
  - DRUG INTERACTION [None]
  - PYREXIA [None]
  - HEAD INJURY [None]
  - NYSTAGMUS [None]
  - HEART RATE INCREASED [None]
  - MULTI-ORGAN FAILURE [None]
  - SEROTONIN SYNDROME [None]
  - CONFUSIONAL STATE [None]
  - MUSCLE TWITCHING [None]
  - COMA [None]
  - RHABDOMYOLYSIS [None]
  - ARTERIAL HAEMORRHAGE [None]
  - APRAXIA [None]
  - NO THERAPEUTIC RESPONSE [None]
